FAERS Safety Report 23888125 (Version 1)
Quarter: 2024Q2

REPORT INFORMATION
  Report Type: Spontaneous
  Country: CA (occurrence: CA)
  Receive Date: 20240523
  Receipt Date: 20240523
  Transmission Date: 20240716
  Serious: Yes (Other)
  Sender: FDA-Public Use
  Company Number: CA-PFIZER INC-202300276633

PATIENT

DRUGS (9)
  1. INFLECTRA [Suspect]
     Active Substance: INFLIXIMAB-DYYB
     Indication: Crohn^s disease
     Dosage: 1200 MG, (10MG/KG) W0, W2, W6 AND THEN EVERY 8 WEEKS,
     Route: 042
     Dates: start: 20231016
  2. INFLECTRA [Suspect]
     Active Substance: INFLIXIMAB-DYYB
     Dosage: 1200 MG ,W0, W2, W6 AND THEN EVERY 8 WEEKS
     Route: 042
     Dates: start: 20231030
  3. INFLECTRA [Suspect]
     Active Substance: INFLIXIMAB-DYYB
     Dosage: 1200 MG ,W0, W2, W6 AND THEN EVERY 8 WEEKS(AFTER 4 WEEKS)
     Route: 042
     Dates: start: 20231127
  4. INFLECTRA [Suspect]
     Active Substance: INFLIXIMAB-DYYB
     Dosage: 1200 MG ,W0, W2, W6 AND THEN EVERY 8 WEEKS (DOSAGE ADMINISTERED: 1200MG AFTER 8 WEEK)
     Route: 042
     Dates: start: 20240123
  5. INFLECTRA [Suspect]
     Active Substance: INFLIXIMAB-DYYB
     Dosage: 1200 MG ,W0, W2, W6 AND THEN EVERY 8 WEEKS (DOSAGE ADMINISTERED: 1200MG AFTER 8 WEEK)
     Route: 042
     Dates: start: 20240123
  6. INFLECTRA [Suspect]
     Active Substance: INFLIXIMAB-DYYB
     Dosage: 1200 MG ,W0, W2, W6 AND THEN EVERY 8 WEEKS (1200 MG, 8 WEEK)
     Route: 042
     Dates: start: 20240319
  7. INFLECTRA [Suspect]
     Active Substance: INFLIXIMAB-DYYB
     Dosage: 1200 MG ,W0, W2, W6 AND THEN EVERY 8 WEEKS (1200 MG, 8 WEEK)
     Route: 042
     Dates: start: 20240319
  8. INFLECTRA [Suspect]
     Active Substance: INFLIXIMAB-DYYB
     Dosage: 1200 MG ,W0, W2, W6 AND THEN EVERY 8 WEEKS (1200 MG, 8 WEEK)
     Route: 042
     Dates: start: 20240514
  9. INFLECTRA [Suspect]
     Active Substance: INFLIXIMAB-DYYB
     Dosage: 1200 MG ,W0, W2, W6 AND THEN EVERY 8 WEEKS (1200 MG, 8 WEEK)
     Route: 042
     Dates: start: 20240514

REACTIONS (14)
  - Pyoderma gangrenosum [Unknown]
  - Blood pressure increased [Recovered/Resolved]
  - Condition aggravated [Not Recovered/Not Resolved]
  - Abdominal distension [Not Recovered/Not Resolved]
  - Arthralgia [Not Recovered/Not Resolved]
  - Anal fissure [Not Recovered/Not Resolved]
  - Abscess [Not Recovered/Not Resolved]
  - Erythema nodosum [Not Recovered/Not Resolved]
  - Fistula [Unknown]
  - Anxiety [Unknown]
  - Aphthous ulcer [Not Recovered/Not Resolved]
  - Off label use [Unknown]
  - Off label use [Unknown]
  - Intentional product use issue [Unknown]

NARRATIVE: CASE EVENT DATE: 20230101
